FAERS Safety Report 5218961-X (Version None)
Quarter: 2007Q1

REPORT INFORMATION
  Report Type: 
  Country: None (occurrence: None)
  Receive Date: 20070125
  Receipt Date: 20070115
  Transmission Date: 20070707
  Serious: Yes (Life-Threatening)
  Sender: FDA-Public Use
  Company Number: IT-BRISTOL-MYERS SQUIBB COMPANY-13643481

PATIENT
  Age: 72 Year
  Sex: Female

DRUGS (4)
  1. IRBESARTAN [Suspect]
     Indication: HYPERTENSION
     Route: 048
     Dates: start: 20060927, end: 20061004
  2. ALMARYTM [Suspect]
     Indication: ATRIAL FIBRILLATION
     Dates: start: 20060927
  3. CORDARONE [Suspect]
     Indication: ATRIAL FIBRILLATION
     Dates: start: 20060927
  4. TENORETIC 100 [Suspect]
     Indication: ESSENTIAL HYPERTENSION
     Dates: start: 20060927, end: 20061004

REACTIONS (2)
  - BRADYCARDIA [None]
  - ELECTROCARDIOGRAM ABNORMAL [None]
